FAERS Safety Report 24972955 (Version 1)
Quarter: 2025Q1

REPORT INFORMATION
  Report Type: Spontaneous
  Country: GB (occurrence: GB)
  Receive Date: 20250215
  Receipt Date: 20250215
  Transmission Date: 20250408
  Serious: Yes (Other)
  Sender: ALKEM
  Company Number: None

PATIENT
  Age: 53 Year
  Sex: Male
  Weight: 117 kg

DRUGS (15)
  1. EZETIMIBE [Suspect]
     Active Substance: EZETIMIBE
     Indication: Product used for unknown indication
     Route: 065
  2. BEMPEDOIC ACID\EZETIMIBE [Suspect]
     Active Substance: BEMPEDOIC ACID\EZETIMIBE
     Indication: Ill-defined disorder
     Route: 065
     Dates: start: 20250116
  3. AMLODIPINE [Concomitant]
     Active Substance: AMLODIPINE BESYLATE
     Indication: Ill-defined disorder
     Dosage: UNK, OD (TPP YC-PLEASE RECLASSIFY)
     Route: 065
     Dates: start: 20240904
  4. ATORVASTATIN [Concomitant]
     Active Substance: ATORVASTATIN
     Indication: Ill-defined disorder
     Dosage: UNK, QD (TPP YC-PLEASE RECLASSIFY)
     Route: 065
     Dates: start: 20240904
  5. ATORVASTATIN [Concomitant]
     Active Substance: ATORVASTATIN
     Route: 065
  6. BEMPEDOIC ACID [Concomitant]
     Active Substance: BEMPEDOIC ACID
     Indication: Ill-defined disorder
     Dosage: UNK, QD ((ALONGSIDE ATORVASTATIN 20MG TPP YC-PLEASE RECLASSIFY)
     Route: 065
     Dates: start: 20241219, end: 20250116
  7. DAPAGLIFLOZIN [Concomitant]
     Active Substance: DAPAGLIFLOZIN
     Indication: Ill-defined disorder
     Dosage: UNK, QD (TPP YC-PLEASE RECLASSIFY)
     Route: 065
     Dates: start: 20240904
  8. DERMOL [Concomitant]
     Active Substance: BENZALKONIUM CHLORIDE\CHLORHEXIDINE HYDROCHLORIDE\ISOPROPYL MYRISTATE\PARAFFIN
     Indication: Ill-defined disorder
     Route: 065
     Dates: start: 20240904
  9. ENSTILAR [Concomitant]
     Active Substance: BETAMETHASONE DIPROPIONATE\CALCIPOTRIENE HYDRATE
     Indication: Ill-defined disorder
     Dosage: UNK, QD (TPP YC-PLEASE RECLASSIFY)
     Route: 065
     Dates: start: 20240507, end: 20241209
  10. INDAPAMIDE [Concomitant]
     Active Substance: INDAPAMIDE
     Indication: Ill-defined disorder
     Dosage: UNK, QD (TAKE ONE EACH MORNING TPP YC-PLEASE RECLASSIFY)
     Route: 065
     Dates: start: 20240904
  11. MOUNJARO [Concomitant]
     Active Substance: TIRZEPATIDE
     Indication: Ill-defined disorder
     Dosage: 2.5 MILLIGRAM, ONCE WEEKLY (TPP YC-PLEASE RECLASSIFY)
     Route: 058
     Dates: start: 20241104
  12. RAMIPRIL [Concomitant]
     Active Substance: RAMIPRIL
     Indication: Ill-defined disorder
     Dosage: UNK, QD (TPP YC-PLEASE RECLASSIFY)
     Route: 065
     Dates: start: 20240904
  13. SPIRONOLACTONE [Concomitant]
     Active Substance: SPIRONOLACTONE
     Indication: Ill-defined disorder
     Dosage: 1 DOSAGE FORM, QD
     Route: 065
     Dates: start: 20240904
  14. TACROLIMUS [Concomitant]
     Active Substance: TACROLIMUS
     Indication: Ill-defined disorder
     Dosage: UNK, QD (APPLY TO TRUNK AREA AND FACE TPP YC-PLEASE RECLASSIFY)
     Route: 065
     Dates: start: 20240507
  15. TAMSULOSIN HYDROCHLORIDE [Concomitant]
     Active Substance: TAMSULOSIN HYDROCHLORIDE
     Indication: Ill-defined disorder
     Dosage: UNK, QD(TPP YC-PLEASE RECLASSIFY)
     Route: 065
     Dates: start: 20240904

REACTIONS (2)
  - Muscular weakness [Recovered/Resolved]
  - Pruritus [Recovered/Resolved]

NARRATIVE: CASE EVENT DATE: 20250116
